FAERS Safety Report 6492346-0 (Version None)
Quarter: 2009Q4

REPORT INFORMATION
  Report Type: 
  Country: None (occurrence: None)
  Receive Date: 20091208
  Receipt Date: 20091124
  Transmission Date: 20100525
  Serious: Yes (Other)
  Sender: FDA-Public Use
  Company Number: ADR52192009

PATIENT
  Age: 40 Year
  Sex: Male

DRUGS (2)
  1. RISPERIDONE [Suspect]
     Indication: SCHIZOPHRENIA
     Dosage: 50 MG, INTRAMUSCULAR
     Route: 030
     Dates: start: 20030101, end: 20070101
  2. RISPERIDONE [Suspect]
     Indication: SCHIZOPHRENIA
     Dosage: 37.5 MG 1/2 WEEKS

REACTIONS (4)
  - DISEASE RECURRENCE [None]
  - EMOTIONAL DISTRESS [None]
  - ILLUSION [None]
  - PSYCHOTIC DISORDER [None]
